FAERS Safety Report 12619564 (Version 1)
Quarter: 2016Q3

REPORT INFORMATION
  Report Type: Spontaneous
  Country: FR (occurrence: FR)
  Receive Date: 20160803
  Receipt Date: 20160803
  Transmission Date: 20161109
  Serious: Yes (Hospitalization)
  Sender: FDA-Public Use
  Company Number: FR-ABBVIE-16P-056-1692843-00

PATIENT
  Age: 72 Year
  Sex: Female

DRUGS (3)
  1. TARKA [Suspect]
     Active Substance: TRANDOLAPRIL\VERAPAMIL HYDROCHLORIDE
     Indication: HYPERTENSION
     Dosage: FORM STRENGHT:180MG/2MG; DAILY DOSE:1 DF
     Route: 048
     Dates: start: 20140615, end: 20140903
  2. BOSULIF [Suspect]
     Active Substance: BOSUTINIB MONOHYDRATE
     Indication: CHRONIC MYELOID LEUKAEMIA
     Route: 048
     Dates: start: 20140812, end: 20140901
  3. SINGULAIR [Concomitant]
     Active Substance: MONTELUKAST SODIUM
     Indication: COUGH
     Route: 048

REACTIONS (2)
  - Hyperthermia [Recovered/Resolved]
  - Toxic skin eruption [Unknown]

NARRATIVE: CASE EVENT DATE: 20140903
